FAERS Safety Report 11431782 (Version 2)
Quarter: 2016Q1

REPORT INFORMATION
  Report Type: Report from Study
  Country: US (occurrence: US)
  Receive Date: 20150828
  Receipt Date: 20160224
  Transmission Date: 20160525
  Serious: Yes (Other)
  Sender: FDA-Public Use
  Company Number: US-SA-2015SA121360

PATIENT
  Age: 51 Year
  Sex: Male

DRUGS (1)
  1. LEMTRADA [Suspect]
     Active Substance: ALEMTUZUMAB
     Indication: MULTIPLE SCLEROSIS
     Route: 041
     Dates: start: 20150803, end: 20150807

REACTIONS (4)
  - Haematochezia [Unknown]
  - Rash pruritic [Unknown]
  - Skin discolouration [Unknown]
  - Lethargy [Unknown]

NARRATIVE: CASE EVENT DATE: 2015
